FAERS Safety Report 24263410 (Version 1)
Quarter: 2024Q3

REPORT INFORMATION
  Report Type: Spontaneous
  Country: US (occurrence: US)
  Receive Date: 20240829
  Receipt Date: 20240829
  Transmission Date: 20241017
  Serious: Yes (Hospitalization, Other)
  Sender: BRISTOL MYERS SQUIBB
  Company Number: US-BRISTOL-MYERS SQUIBB COMPANY-2024-134188

PATIENT
  Age: 74 Year
  Sex: Female

DRUGS (2)
  1. LENALIDOMIDE [Suspect]
     Active Substance: LENALIDOMIDE
     Indication: Plasma cell myeloma
     Dosage: TAKE 1 CAPSULE BY MOUTH ONCE A DAY ?FOR 21 DAYS OF A 28
     Route: 048
     Dates: start: 20240807
  2. ELIQUIS [Suspect]
     Active Substance: APIXABAN
     Indication: Product used for unknown indication
     Dates: start: 20240814

REACTIONS (9)
  - Vision blurred [Unknown]
  - Diarrhoea [Unknown]
  - Dizziness [Unknown]
  - Dehydration [Unknown]
  - Blood potassium decreased [Recovering/Resolving]
  - Atrial fibrillation [Recovered/Resolved]
  - Syncope [Unknown]
  - Hypotension [Recovering/Resolving]
  - Balance disorder [Unknown]

NARRATIVE: CASE EVENT DATE: 20240801
